FAERS Safety Report 19035221 (Version 1)
Quarter: 2021Q1

REPORT INFORMATION
  Report Type: Other
  Country: US (occurrence: US)
  Receive Date: 20210320
  Receipt Date: 20210320
  Transmission Date: 20210420
  Serious: No
  Sender: FDA-Public Use
  Company Number: US-ACORDA-ACO_167310_2020

PATIENT
  Age: 64 Year
  Sex: Male

DRUGS (1)
  1. INBRIJA [Suspect]
     Active Substance: LEVODOPA
     Indication: PARKINSON^S DISEASE
     Dosage: 84 MILLIGRAM, PRN (UP TO 5 TIMES DAILY AS NEEDED) ATLEAST 2 HOURS APART
     Dates: start: 20201015

REACTIONS (3)
  - Respiratory disorder [Unknown]
  - Incorrect dose administered by device [Unknown]
  - Throat irritation [Unknown]

NARRATIVE: CASE EVENT DATE: 20210222
